FAERS Safety Report 5419057-4 (Version None)
Quarter: 2007Q3

REPORT INFORMATION
  Report Type: 
  Country: None (occurrence: None)
  Receive Date: 20070820
  Receipt Date: 20070809
  Transmission Date: 20080115
  Serious: Yes (Hospitalization)
  Sender: FDA-Public Use
  Company Number: CHNY2007BR02858

PATIENT
  Age: 69 Year
  Sex: Male
  Weight: 73 kg

DRUGS (6)
  1. CALCIUM-SANDOZ 'FORTE' (NCH) [Suspect]
     Indication: PARATHYROIDECTOMY
     Dosage: UNK, UNK
     Route: 048
  2. CALCIUM-SANDOZ 'FORTE' (NCH) [Suspect]
     Route: 048
  3. HYDERGINE [Suspect]
     Indication: MEMORY IMPAIRMENT
     Dosage: 6 MG, QD
     Route: 048
  4. GLYBURIDE [Concomitant]
     Indication: DIABETES MELLITUS
     Dosage: 3 TABLETS DAILY
     Route: 048
  5. METFORMIN HCL [Concomitant]
     Indication: DIABETES MELLITUS
     Dosage: 3 TABLETS DAILY
     Route: 048
  6. VITAMIN D [Concomitant]
     Route: 048

REACTIONS (7)
  - BLOOD CALCIUM DECREASED [None]
  - DRUG INEFFECTIVE [None]
  - FEELING ABNORMAL [None]
  - GAIT DISTURBANCE [None]
  - MEMORY IMPAIRMENT [None]
  - MUSCULOSKELETAL STIFFNESS [None]
  - PAIN IN EXTREMITY [None]
